FAERS Safety Report 7049343-6 (Version None)
Quarter: 2010Q4

REPORT INFORMATION
  Report Type: 
  Country: None (occurrence: None)
  Receive Date: 20101018
  Receipt Date: 20101011
  Transmission Date: 20110411
  Serious: Yes (Death, Other)
  Sender: FDA-Public Use
  Company Number: US-ROCHE-733118

PATIENT
  Sex: Female

DRUGS (2)
  1. CAPECITABINE [Suspect]
     Dosage: FORM:PILL
     Route: 048
  2. TRASTUZUMAB [Suspect]
     Route: 065
     Dates: start: 20060101

REACTIONS (17)
  - ANAEMIA [None]
  - COLITIS [None]
  - DEATH [None]
  - DIARRHOEA [None]
  - EMBOLISM ARTERIAL [None]
  - FATIGUE [None]
  - FEBRILE NEUTROPENIA [None]
  - INFECTION [None]
  - LEUKOPENIA [None]
  - MUCOSAL INFLAMMATION [None]
  - MYELODYSPLASTIC SYNDROME [None]
  - NAUSEA [None]
  - NEUTROPENIA [None]
  - PALMAR-PLANTAR ERYTHRODYSAESTHESIA SYNDROME [None]
  - THROMBOCYTOPENIA [None]
  - THROMBOSIS [None]
  - VOMITING [None]
